FAERS Safety Report 10656498 (Version 4)
Quarter: 2015Q1

REPORT INFORMATION
  Report Type: Spontaneous
  Country: BR (occurrence: BR)
  Receive Date: 20141216
  Receipt Date: 20150128
  Transmission Date: 20150720
  Serious: Yes (Other)
  Sender: FDA-Public Use
  Company Number: BR-LUNDBECK-DKLU1106638

PATIENT
  Age: 48 Year
  Sex: Female

DRUGS (6)
  1. FRISIUM [Suspect]
     Active Substance: CLOBAZAM
     Dosage: ONE-HALF
     Route: 065
     Dates: start: 2008
  2. FRISIUM [Suspect]
     Active Substance: CLOBAZAM
     Dosage: HALF TABLET
     Route: 065
     Dates: start: 2008
  3. FRISIUM [Suspect]
     Active Substance: CLOBAZAM
     Indication: ARRHYTHMIA
     Dosage: ONE-FOURTH
     Route: 065
     Dates: start: 2008
  4. FRISIUM [Suspect]
     Active Substance: CLOBAZAM
     Dosage: ONE-FOURTH
     Route: 065
     Dates: start: 2008
  5. FRISIUM [Suspect]
     Active Substance: CLOBAZAM
     Dosage: HALF 2 TABLET
     Route: 065
     Dates: start: 2008
  6. LAMOTRIGINE. [Suspect]
     Active Substance: LAMOTRIGINE
     Indication: ARRHYTHMIA
     Route: 048

REACTIONS (8)
  - Agitation [Recovered/Resolved]
  - Premenstrual dysphoric disorder [Recovered/Resolved]
  - Visual acuity reduced [Recovered/Resolved]
  - Tremor [Recovered/Resolved]
  - Product quality issue [Recovered/Resolved]
  - Photophobia [Recovered/Resolved]
  - Drug level decreased [Recovered/Resolved]
  - Intentional overdose [None]

NARRATIVE: CASE EVENT DATE: 20141120
